FAERS Safety Report 25983789 (Version 1)
Quarter: 2025Q4

REPORT INFORMATION
  Report Type: Spontaneous
  Country: US (occurrence: None)
  Receive Date: 20251030
  Receipt Date: 20251030
  Transmission Date: 20260118
  Serious: Yes (Hospitalization)
  Sender: FDA-CTU
  Company Number: None

PATIENT
  Sex: Female

DRUGS (2)
  1. CAPECITABINE [Suspect]
     Active Substance: CAPECITABINE
     Indication: Ductal adenocarcinoma of pancreas
     Dosage: 500 MG ORAL ??SEE EVENT?
     Route: 048
     Dates: start: 20250903
  2. TEMOZOLOMIDE [Suspect]
     Active Substance: TEMOZOLOMIDE
     Indication: Ductal adenocarcinoma of pancreas
     Dosage: 360 MG  ORAL?
     Route: 048
     Dates: start: 20250827

REACTIONS (4)
  - Nausea [None]
  - Vomiting [None]
  - Abdominal pain upper [None]
  - Dehydration [None]
